FAERS Safety Report 5086692-5 (Version None)
Quarter: 2006Q3

REPORT INFORMATION
  Report Type: 
  Country: None (occurrence: None)
  Receive Date: 20060823
  Receipt Date: 20060421
  Transmission Date: 20061208
  Serious: No
  Sender: FDA-Public Use
  Company Number: 34942389

PATIENT
  Age: 3 Year
  Sex: Male
  Weight: 16 kg

DRUGS (2)
  1. MALARONE [Suspect]
     Indication: PROPHYLAXIS
     Dosage: 1TAB PER DAY
     Route: 048
     Dates: start: 20060317
  2. NO CONCURRENT MEDICATION [Concomitant]

REACTIONS (3)
  - ANOREXIA [None]
  - MOUTH ULCERATION [None]
  - OCULAR HYPERAEMIA [None]
